FAERS Safety Report 6681896-X (Version None)
Quarter: 2010Q2

REPORT INFORMATION
  Report Type: 
  Country: None (occurrence: None)
  Receive Date: 20100414
  Receipt Date: 20100406
  Transmission Date: 20101027
  Serious: Yes (Death)
  Sender: FDA-Public Use
  Company Number: US-AMGEN-QUU394568

PATIENT
  Sex: Male
  Weight: 113 kg

DRUGS (8)
  1. NPLATE [Suspect]
     Indication: IDIOPATHIC THROMBOCYTOPENIC PURPURA
     Route: 058
     Dates: start: 20090629, end: 20091109
  2. METOPROLOL TARTRATE [Concomitant]
  3. LANTUS [Concomitant]
  4. LOVASTATIN [Concomitant]
  5. PAROXETINE HCL [Concomitant]
  6. TRAZODONE [Concomitant]
  7. CLONAZEPAM [Concomitant]
  8. OXYGEN [Concomitant]

REACTIONS (2)
  - FALL [None]
  - HAEMORRHAGE INTRACRANIAL [None]
